FAERS Safety Report 9207561 (Version 2)
Quarter: 2013Q3

REPORT INFORMATION
  Report Type: Spontaneous
  Country: JP (occurrence: JP)
  Receive Date: 20130403
  Receipt Date: 20130802
  Transmission Date: 20140515
  Serious: Yes (Hospitalization)
  Sender: FDA-Public Use
  Company Number: JP-ROCHE-1209336

PATIENT
  Age: 75 Year
  Sex: Male

DRUGS (5)
  1. AVASTIN [Suspect]
     Indication: COLON CANCER
     Route: 041
     Dates: start: 20130314
  2. ELPLAT [Suspect]
     Indication: COLON CANCER
     Dosage: DOSAGE IS UNCERTAIN.
     Route: 041
  3. 5-FU [Suspect]
     Indication: COLON CANCER
     Dosage: DOSAGE IS UNCERTAIN.
     Route: 040
  4. 5-FU [Suspect]
     Indication: COLON CANCER
     Dosage: DOSAGE IS UNCERTAIN.
     Route: 041
  5. CALCIUM LEVOFOLINATE [Suspect]
     Indication: COLON CANCER
     Dosage: DOSAGE IS UNCERTAIN.
     Route: 041

REACTIONS (1)
  - Interstitial lung disease [Recovered/Resolved]
